FAERS Safety Report 6211247-6 (Version None)
Quarter: 2009Q2

REPORT INFORMATION
  Report Type: 
  Country: None (occurrence: None)
  Receive Date: 20090602
  Receipt Date: 20090529
  Transmission Date: 20091009
  Serious: Yes (Death)
  Sender: FDA-Public Use
  Company Number: PHEH2009US05433

PATIENT
  Age: 16 Year
  Sex: Female

DRUGS (1)
  1. EXJADE [Suspect]
     Indication: THALASSAEMIA
     Dosage: 875 MG, QD

REACTIONS (1)
  - CARDIAC DISORDER [None]
